FAERS Safety Report 25432499 (Version 1)
Quarter: 2025Q2

REPORT INFORMATION
  Report Type: Spontaneous
  Country: JP (occurrence: JP)
  Receive Date: 20250613
  Receipt Date: 20250613
  Transmission Date: 20250716
  Serious: Yes (Hospitalization, Other)
  Sender: TAKEDA
  Company Number: JP-MMM-Otsuka-GSLKT9EM

PATIENT

DRUGS (1)
  1. ICLUSIG [Suspect]
     Active Substance: PONATINIB HYDROCHLORIDE
     Indication: Product used for unknown indication
     Dosage: 15 MILLIGRAM, QD
     Dates: end: 202506

REACTIONS (1)
  - Prinzmetal angina [Unknown]

NARRATIVE: CASE EVENT DATE: 20250608
